FAERS Safety Report 7752355-8 (Version None)
Quarter: 2011Q3

REPORT INFORMATION
  Report Type: 
  Country: None (occurrence: None)
  Receive Date: 20110915
  Receipt Date: 20110817
  Transmission Date: 20111222
  Serious: Yes (Hospitalization)
  Sender: FDA-Public Use
  Company Number: PHHY2011BR76957

PATIENT
  Age: 59 Year
  Sex: Male

DRUGS (4)
  1. ONBREZ [Suspect]
     Dosage: 150 UG, UNK
  2. ONBREZ [Suspect]
     Dosage: 300 UG, UNK
  3. SPIRIVA [Concomitant]
  4. FORMOTEROL FUMARATE [Suspect]
     Dosage: UNK

REACTIONS (4)
  - MALAISE [None]
  - DYSPNOEA [None]
  - SYNCOPE [None]
  - CHEST DISCOMFORT [None]
